FAERS Safety Report 25001523 (Version 2)
Quarter: 2025Q2

REPORT INFORMATION
  Report Type: Report from Study
  Country: DE (occurrence: DE)
  Receive Date: 20250223
  Receipt Date: 20250410
  Transmission Date: 20250716
  Serious: Yes (Other)
  Sender: ABBVIE
  Company Number: DE-ABBVIE-6139123

PATIENT
  Age: 54 Year
  Sex: Female
  Weight: 82 kg

DRUGS (3)
  1. RINVOQ [Suspect]
     Active Substance: UPADACITINIB
     Indication: Rheumatoid arthritis
     Route: 048
     Dates: start: 20230928
  2. RINVOQ [Suspect]
     Active Substance: UPADACITINIB
     Indication: Rheumatoid arthritis
     Route: 048
  3. RINVOQ [Suspect]
     Active Substance: UPADACITINIB
     Indication: Rheumatoid arthritis
     Dosage: END DATE- 2023
     Route: 048
     Dates: start: 20230426

REACTIONS (25)
  - Basal cell carcinoma [Not Recovered/Not Resolved]
  - Weight increased [Not Recovered/Not Resolved]
  - Listless [Not Recovered/Not Resolved]
  - Infection [Recovered/Resolved]
  - Oral herpes [Recovered/Resolved]
  - Nausea [Not Recovered/Not Resolved]
  - Headache [Not Recovered/Not Resolved]
  - Abdominal pain upper [Not Recovered/Not Resolved]
  - Respiratory disorder [Not Recovered/Not Resolved]
  - Liver function test abnormal [Not Recovered/Not Resolved]
  - Lipids abnormal [Not Recovered/Not Resolved]
  - Blood pressure increased [Not Recovered/Not Resolved]
  - Menopausal symptoms [Unknown]
  - Mania [Unknown]
  - Abnormal loss of weight [Not Recovered/Not Resolved]
  - Adverse drug reaction [Unknown]
  - Cardiac operation [Unknown]
  - Rotator cuff syndrome [Unknown]
  - Trigeminal neuralgia [Unknown]
  - Joint swelling [Recovering/Resolving]
  - Psoriasis [Unknown]
  - Arthralgia [Unknown]
  - HLA-B*27 positive [Unknown]
  - Arthralgia [Recovering/Resolving]
  - Carpal tunnel syndrome [Unknown]

NARRATIVE: CASE EVENT DATE: 20230101
